FAERS Safety Report 17646929 (Version 1)
Quarter: 2020Q2

REPORT INFORMATION
  Report Type: Spontaneous
  Country: FR (occurrence: FR)
  Receive Date: 20200408
  Receipt Date: 20200408
  Transmission Date: 20200713
  Serious: Yes (Other)
  Sender: FDA-Public Use
  Company Number: FR-PFIZER INC-2020140285

PATIENT
  Age: 47 Year
  Sex: Female
  Weight: 71.4 kg

DRUGS (16)
  1. LEVOTHYROX [Suspect]
     Active Substance: LEVOTHYROXINE
     Indication: HYPOTHYROIDISM
     Dosage: 1 DF, 1X/DAY, (75 ?G EVEN DAYS, 100 ?G ODD DAYS)
     Route: 048
  2. METOPROLOL FUMARATE [Suspect]
     Active Substance: METOPROLOL FUMARATE
     Dosage: 100 MG, 1X/DAY
     Route: 048
  3. INEXIUM [Suspect]
     Active Substance: ESOMEPRAZOLE
     Indication: GASTRITIS PROPHYLAXIS
     Dosage: 1 DF, 1X/DAY
     Route: 048
     Dates: end: 20200305
  4. TRAMADOL HCL [Suspect]
     Active Substance: TRAMADOL HYDROCHLORIDE
     Indication: PAIN
     Dosage: 100 MG, UNK
     Route: 048
  5. NOCTAMIDE [Suspect]
     Active Substance: LORMETAZEPAM
     Indication: SLEEP DISORDER
     Dosage: 1 DF, 1X/DAY
     Route: 048
  6. EPITOMAX [Suspect]
     Active Substance: TOPIRAMATE
     Indication: EPILEPSY
     Dosage: 125 MG, UNK
     Route: 048
  7. SALAZOPYRINE [Concomitant]
     Active Substance: SULFASALAZINE
     Dosage: UNK
  8. ATARAX [Suspect]
     Active Substance: HYDROXYZINE HYDROCHLORIDE
     Indication: DEPRESSION
     Dosage: 2 DF, 1X/DAY
     Route: 048
  9. ATORVASTATIN CALCIUM. [Suspect]
     Active Substance: ATORVASTATIN CALCIUM
     Dosage: 40 MG, UNK
     Route: 048
  10. COSENTYX [Concomitant]
     Active Substance: SECUKINUMAB
     Dosage: UNK
  11. SERTRALINE HCL [Suspect]
     Active Substance: SERTRALINE HYDROCHLORIDE
     Indication: DEPRESSION
     Dosage: 50 MG, UNK
     Route: 048
     Dates: end: 20200306
  12. LUTENYL [Suspect]
     Active Substance: NOMEGESTROL ACETATE
     Dosage: 5 MG, 1X/DAY
     Route: 048
  13. CIMZIA [Concomitant]
     Active Substance: CERTOLIZUMAB PEGOL
     Dosage: UNK
  14. LEXOMIL [Suspect]
     Active Substance: BROMAZEPAM
     Indication: DEPRESSION
     Dosage: 2 DF, 1X/DAY
     Route: 048
  15. TERALITHE [Suspect]
     Active Substance: LITHIUM CARBONATE
     Indication: BIPOLAR DISORDER
     Dosage: 2 DF, UNK
     Route: 048
  16. MELATONIN [Suspect]
     Active Substance: MELATONIN
     Dosage: 2 MG, UNK
     Route: 048

REACTIONS (3)
  - Gastritis [Not Recovered/Not Resolved]
  - Weight decreased [Not Recovered/Not Resolved]
  - Colitis [Not Recovered/Not Resolved]

NARRATIVE: CASE EVENT DATE: 201906
